FAERS Safety Report 23736896 (Version 1)
Quarter: 2024Q2

REPORT INFORMATION
  Report Type: Spontaneous
  Country: FR (occurrence: FR)
  Receive Date: 20240412
  Receipt Date: 20240412
  Transmission Date: 20240717
  Serious: Yes (Hospitalization)
  Sender: FDA-Public Use
  Company Number: FR-SUN PHARMACEUTICAL INDUSTRIES LTD-2024RR-442021

PATIENT
  Age: 16 Year
  Sex: Male
  Weight: 105 kg

DRUGS (7)
  1. PANTOPRAZOLE [Suspect]
     Active Substance: PANTOPRAZOLE
     Indication: Product used for unknown indication
     Dosage: 40MG
     Route: 040
     Dates: start: 20210929, end: 20211004
  2. HEPARIN [Suspect]
     Active Substance: HEPARIN SODIUM
     Indication: Product used for unknown indication
     Dosage: UNK
     Route: 040
     Dates: start: 20210928, end: 20211005
  3. ESOMEPRAZOLE [Suspect]
     Active Substance: ESOMEPRAZOLE
     Indication: Product used for unknown indication
     Dosage: 40MG
     Route: 040
     Dates: start: 20210924, end: 20210929
  4. CHLORPROMAZINE [Suspect]
     Active Substance: CHLORPROMAZINE
     Indication: Agitation
     Dosage: 200MG
     Route: 040
     Dates: start: 20210930, end: 20211005
  5. CLOXACILLIN [Suspect]
     Active Substance: CLOXACILLIN
     Indication: Septic shock
     Dosage: UNK
     Route: 040
     Dates: start: 20210915, end: 20210929
  6. CEFAZOLIN SODIUM [Concomitant]
     Active Substance: CEFAZOLIN SODIUM
     Indication: Septic shock
     Dosage: 1GX2 IV
     Route: 040
     Dates: start: 20210929, end: 20210930
  7. HYDROXYZINE [Concomitant]
     Active Substance: HYDROXYZINE HYDROCHLORIDE
     Indication: Product used for unknown indication
     Dosage: 50MG 3X IV
     Route: 040
     Dates: start: 20210924, end: 20210928

REACTIONS (1)
  - Pancytopenia [Recovered/Resolved]

NARRATIVE: CASE EVENT DATE: 20211002
